FAERS Safety Report 6358577-5 (Version None)
Quarter: 2009Q3

REPORT INFORMATION
  Report Type: 
  Country: None (occurrence: None)
  Receive Date: 20090914
  Receipt Date: 20090902
  Transmission Date: 20100115
  Serious: Yes (Hospitalization, Other)
  Sender: FDA-Public Use
  Company Number: 09US003549

PATIENT
  Age: 47 Year
  Sex: Female
  Weight: 74.8 kg

DRUGS (6)
  1. IBUPROFEN AND DIPHENHYDRAMINE CITRATE [Suspect]
     Indication: INSOMNIA
     Dosage: SEE IMAGE
     Route: 048
     Dates: start: 20081224, end: 20090201
  2. IBUPROFEN AND DIPHENHYDRAMINE CITRATE [Suspect]
     Indication: INSOMNIA
     Dosage: SEE IMAGE
     Route: 048
     Dates: start: 20090201, end: 20090430
  3. IBUPROFEN AND DIPHENHYDRAMINE CITRATE [Suspect]
     Indication: INSOMNIA
     Dosage: SEE IMAGE
     Route: 048
     Dates: start: 20090503, end: 20090615
  4. IBUPROFEN AND DIPHENHYDRAMINE CITRATE [Suspect]
     Indication: INSOMNIA
     Dosage: SEE IMAGE
     Route: 048
     Dates: start: 20090618, end: 20090722
  5. ADVIL PM [Suspect]
     Indication: INSOMNIA
     Dosage: 2-3 TABLETS EVERY NIGHT, ORAL
     Route: 048
     Dates: start: 20080801, end: 20081115
  6. COLON CLEANSING PRODUCT [Suspect]

REACTIONS (13)
  - BLOOD POTASSIUM ABNORMAL [None]
  - BLOOD PRESSURE INCREASED [None]
  - DELUSION [None]
  - DISORIENTATION [None]
  - ENEMA ADMINISTRATION [None]
  - INCORRECT DOSE ADMINISTERED [None]
  - INTENTIONAL DRUG MISUSE [None]
  - LUDWIG ANGINA [None]
  - PALPITATIONS [None]
  - PARANOIA [None]
  - PHYSICAL ASSAULT [None]
  - SLEEP TERROR [None]
  - VOMITING [None]
